FAERS Safety Report 22289222 (Version 1)
Quarter: 2023Q2

REPORT INFORMATION
  Report Type: Spontaneous
  Country: US (occurrence: None)
  Receive Date: 20230504
  Receipt Date: 20230504
  Transmission Date: 20230721
  Serious: No
  Sender: FDA-Public Use
  Company Number: None

PATIENT
  Age: 74 Year
  Sex: Female
  Weight: 79.2 kg

DRUGS (4)
  1. ALBUTEROL SULFATE [Suspect]
     Active Substance: ALBUTEROL SULFATE
     Indication: Emphysema
     Dosage: OTHER QUANTITY : 1 INHALATION(S);?FREQUENCY : AS NEEDED;?
     Route: 055
     Dates: start: 20230217, end: 20230503
  2. nebulizer treatment [Concomitant]
  3. VITAMIN D [Concomitant]
     Active Substance: VITAMIN D NOS
  4. VITAMINS [Concomitant]
     Active Substance: VITAMINS

REACTIONS (2)
  - Drug ineffective [None]
  - Product substitution issue [None]

NARRATIVE: CASE EVENT DATE: 20230503
